FAERS Safety Report 20128394 (Version 1)
Quarter: 2021Q4

REPORT INFORMATION
  Report Type: Spontaneous
  Country: US (occurrence: US)
  Receive Date: 20211130
  Receipt Date: 20211130
  Transmission Date: 20220303
  Serious: No
  Sender: FDA-Public Use
  Company Number: US-GLAXOSMITHKLINE-USCH2021084621

PATIENT

DRUGS (4)
  1. COSMETICS [Suspect]
     Active Substance: COSMETICS
     Indication: Lip dry
     Dosage: UNK
  2. COSMETICS [Suspect]
     Active Substance: COSMETICS
     Indication: Chapped lips
  3. CHAPSTICK NOS [Suspect]
     Active Substance: AVOBENZONE\HOMOSALATE\OCTINOXATE\OCTISALATE\OCTOCRYLENE\OXYBENZONE\TITANIUM DIOXIDE\ZINC OXIDE
     Indication: Lip dry
     Dosage: UNK
  4. CHAPSTICK NOS [Suspect]
     Active Substance: AVOBENZONE\HOMOSALATE\OCTINOXATE\OCTISALATE\OCTOCRYLENE\OXYBENZONE\TITANIUM DIOXIDE\ZINC OXIDE
     Indication: Chapped lips

REACTIONS (3)
  - Lip dry [Unknown]
  - Chapped lips [Unknown]
  - Condition aggravated [Unknown]
